FAERS Safety Report 8243208-X (Version None)
Quarter: 2012Q1

REPORT INFORMATION
  Report Type: 
  Country: None (occurrence: None)
  Receive Date: 20120314
  Receipt Date: 20110408
  Transmission Date: 20120608
  Serious: Yes (Hospitalization)
  Sender: FDA-Public Use
  Company Number: PHHY2011US30851

PATIENT
  Sex: Female

DRUGS (1)
  1. FANAPT [Suspect]
     Dosage: 12 MG, BID, ORAL
     Route: 048

REACTIONS (2)
  - TACHYCARDIA [None]
  - BLOOD PRESSURE DECREASED [None]
